FAERS Safety Report 5579319-7 (Version None)
Quarter: 2007Q4

REPORT INFORMATION
  Report Type: 
  Country: None (occurrence: None)
  Receive Date: 20071221
  Receipt Date: 20071207
  Transmission Date: 20080405
  Serious: Yes (Hospitalization)
  Sender: FDA-Public Use
  Company Number: WAES 0712USA02581

PATIENT
  Age: 73 Year
  Sex: Female
  Weight: 48.0813 kg

DRUGS (3)
  1. TAB DECADRON TABLETS UNK 2 MG TEMOZOLOMIDE 75 MG/M[2], 150 MG/M[2] [Suspect]
     Indication: GLIOBLASTOMA MULTIFORME
     Dosage: 2 MG/BID/PO; 75 MG/M[2]/DAILY/PO; 150 MG/M[2]/DAILY/PO; PO
     Route: 048
     Dates: start: 20071025, end: 20071029
  2. TAB DECADRON TABLETS UNK 2 MG TEMOZOLOMIDE 75 MG/M[2], 150 MG/M[2] [Suspect]
     Indication: GLIOBLASTOMA MULTIFORME
     Dosage: 2 MG/BID/PO; 75 MG/M[2]/DAILY/PO; 150 MG/M[2]/DAILY/PO; PO
     Route: 048
     Dates: start: 20070927
  3. TAB DECADRON TABLETS UNK 2 MG TEMOZOLOMIDE 75 MG/M[2], 150 MG/M[2] [Suspect]
     Indication: GLIOBLASTOMA MULTIFORME
     Dosage: 2 MG/BID/PO; 75 MG/M[2]/DAILY/PO; 150 MG/M[2]/DAILY/PO; PO
     Route: 048
     Dates: start: 20071101

REACTIONS (7)
  - BRAIN OEDEMA [None]
  - CONFUSIONAL STATE [None]
  - CONTUSION [None]
  - DISEASE PROGRESSION [None]
  - FALL [None]
  - MUSCULAR WEAKNESS [None]
  - SPEECH DISORDER [None]
